FAERS Safety Report 9891735 (Version 1)
Quarter: 2014Q1

REPORT INFORMATION
  Report Type: Spontaneous
  Country: US (occurrence: US)
  Receive Date: 20140212
  Receipt Date: 20140212
  Transmission Date: 20141002
  Serious: Yes (Other)
  Sender: FDA-Public Use
  Company Number: US-PFIZER INC-2014035437

PATIENT
  Age: 57 Year
  Sex: Male

DRUGS (1)
  1. ZYVOX [Suspect]
     Indication: CELLULITIS
     Dosage: 600 MG, UNK
     Dates: start: 20140110

REACTIONS (1)
  - Rectal haemorrhage [Unknown]
